FAERS Safety Report 25983928 (Version 1)
Quarter: 2025Q4

REPORT INFORMATION
  Report Type: Spontaneous
  Country: CN (occurrence: CN)
  Receive Date: 20251031
  Receipt Date: 20251031
  Transmission Date: 20260118
  Serious: Yes (Hospitalization, Other)
  Sender: JOHNSON AND JOHNSON
  Company Number: CN-JNJFOC-20251026803

PATIENT
  Age: 12 Year
  Sex: Female
  Weight: 54 kg

DRUGS (3)
  1. RISPERIDONE [Suspect]
     Active Substance: RISPERIDONE
     Indication: Emotional disorder
     Route: 048
     Dates: start: 20251001
  2. RISPERIDONE [Suspect]
     Active Substance: RISPERIDONE
     Indication: Impulsive behaviour
     Route: 048
     Dates: start: 202510
  3. RISPERIDONE [Suspect]
     Active Substance: RISPERIDONE
     Dosage: DOSAGE WAS ADJUSTED TO 1 ML/QD12H AND 2 ML/QN
     Route: 048
     Dates: start: 20251009, end: 20251020

REACTIONS (2)
  - Paranoia [Unknown]
  - Extrapyramidal disorder [Recovered/Resolved]

NARRATIVE: CASE EVENT DATE: 20251009
